FAERS Safety Report 18502692 (Version 2)
Quarter: 2020Q4

REPORT INFORMATION
  Report Type: Spontaneous
  Country: FR (occurrence: FR)
  Receive Date: 20201113
  Receipt Date: 20201124
  Transmission Date: 20210114
  Serious: Yes (Death, Hospitalization)
  Sender: FDA-Public Use
  Company Number: FR-MYLANLABS-2020M1093626

PATIENT
  Age: 49 Year
  Sex: Male
  Weight: 76 kg

DRUGS (8)
  1. ETOPOSIDE. [Suspect]
     Active Substance: ETOPOSIDE
     Indication: TESTIS CANCER
     Dosage: 950 MILLIGRAM, CYCLE
     Route: 042
     Dates: start: 20200901, end: 20200905
  2. CISPLATIN. [Suspect]
     Active Substance: CISPLATIN
     Dosage: 190 MILLIGRAM, CYCLE
     Route: 042
     Dates: start: 20200901, end: 20200905
  3. CISPLATIN. [Suspect]
     Active Substance: CISPLATIN
     Indication: TESTIS CANCER
     Dosage: 198 MILLIGRAM, QD
     Route: 051
     Dates: start: 20200924
  4. CISPLATIN. [Suspect]
     Active Substance: CISPLATIN
     Dosage: 198 MILLIGRAM, QD
     Route: 042
     Dates: start: 20200923, end: 20200923
  5. OXALIPLATIN. [Suspect]
     Active Substance: OXALIPLATIN
     Indication: TESTIS CANCER
     Dosage: 247 MILLIGRAM, CYCLE
     Route: 042
     Dates: start: 20200910, end: 20200910
  6. IFOSFAMIDE. [Suspect]
     Active Substance: IFOSFAMIDE
     Indication: TESTIS CANCER
     Dosage: UNK
     Route: 051
     Dates: start: 20200924
  7. PACLITAXEL. [Suspect]
     Active Substance: PACLITAXEL
     Indication: TESTIS CANCER
     Dosage: 330 MILLIGRAM, TOTAL
     Route: 042
     Dates: start: 20200901, end: 20200901
  8. BLEOMYCINE                         /00183901/ [Suspect]
     Active Substance: BLEOMYCIN SULFATE
     Indication: TESTIS CANCER
     Dosage: 90 MILLIGRAM, CYCLE
     Route: 042
     Dates: start: 20200901, end: 20200915

REACTIONS (3)
  - Lung disorder [Fatal]
  - Acute respiratory distress syndrome [Fatal]
  - Respiratory failure [Fatal]

NARRATIVE: CASE EVENT DATE: 20201005
